FAERS Safety Report 10524116 (Version 1)
Quarter: 2014Q4

REPORT INFORMATION
  Report Type: Spontaneous
  Country: US (occurrence: None)
  Receive Date: 20141015
  Receipt Date: 20141015
  Transmission Date: 20150528
  Serious: No
  Sender: FDA-Public Use
  Company Number: None

PATIENT
  Age: 74 Year
  Sex: Female
  Weight: 71.67 kg

DRUGS (1)
  1. TRAVATAN Z [Suspect]
     Active Substance: TRAVOPROST
     Indication: GLAUCOMA
     Dosage: ONE DROP IN EACH EYE
     Route: 047

REACTIONS (8)
  - Foreign body sensation in eyes [None]
  - No therapeutic response [None]
  - Dry eye [None]
  - Halo vision [None]
  - Conjunctivitis [None]
  - Ocular hyperaemia [None]
  - Erythema [None]
  - Vision blurred [None]

NARRATIVE: CASE EVENT DATE: 20140409
